FAERS Safety Report 8796019 (Version 1)
Quarter: 2012Q4

REPORT INFORMATION
  Report Type: 
  Country: IT (occurrence: IT)
  Receive Date: 20120920
  Receipt Date: 20120920
  Transmission Date: 20130627
  Serious: Yes (Death, Hospitalization)
  Sender: FDA-Public Use
  Company Number: IT-RANBAXY-2010R1-40206

PATIENT
  Age: 60 Year
  Sex: Male

DRUGS (12)
  1. AMITRIPTYLINE [Suspect]
     Indication: DEPRESSION
     Dosage: 75 mg daily (25+50mg)
     Route: 048
  2. HYDROCHLOROTHIAZIDE [Suspect]
     Indication: PRODUCT USED FOR UNKNOWN INDICATION
     Dosage: 25 mg daily
     Route: 048
  3. CISPLATIN [Suspect]
     Indication: CHEMOTHERAPY
     Dosage: UNK
     Route: 065
     Dates: start: 20090219
  4. FLUPHENAZINE [Suspect]
     Indication: DEPRESSION
     Dosage: 4 mg, bid
     Route: 048
  5. ADRIAMYCIN [Concomitant]
     Indication: CHEMOTHERAPY
     Dosage: 60mg/m ^2
     Route: 065
  6. AMLODIPINE [Concomitant]
     Indication: PRODUCT USED FOR UNKNOWN INDICATION
     Dosage: 5 mg daily
     Route: 048
  7. BARBEXACLONE [Concomitant]
     Indication: PRODUCT USED FOR UNKNOWN INDICATION
     Dosage: 225 mg
     Route: 048
  8. BEPERIDEN [Concomitant]
     Indication: PRODUCT USED FOR UNKNOWN INDICATION
     Route: 048
  9. CARDIOXANE [Concomitant]
     Indication: HYPERTENSIVE HEART DISEASE
     Route: 065
  10. PHENOBARBITAL [Concomitant]
     Indication: EPILEPSY
     Route: 065
  11. PHENYTOIN [Concomitant]
     Indication: EPILEPSY
     Dosage: (100+50+100mg) daily
     Route: 048
  12. RAMIPRIL [Concomitant]
     Indication: PRODUCT USED FOR UNKNOWN INDICATION
     Dosage: 5 mg daily
     Route: 048

REACTIONS (3)
  - Inappropriate antidiuretic hormone secretion [Recovering/Resolving]
  - Coma [Recovering/Resolving]
  - Hyponatraemia [Recovering/Resolving]
